FAERS Safety Report 4832634-4 (Version None)
Quarter: 2005Q4

REPORT INFORMATION
  Report Type: 
  Country: None (occurrence: None)
  Receive Date: 20051117
  Receipt Date: 20051024
  Transmission Date: 20060501
  Serious: Yes (Hospitalization)
  Sender: FDA-Public Use
  Company Number: TPA2005A01311

PATIENT
  Age: 68 Year
  Sex: Male
  Weight: 108.4097 kg

DRUGS (8)
  1. PIOGLITAZONE HCL [Suspect]
     Indication: GLUCOSE TOLERANCE IMPAIRED
     Dosage: 1 IN 1 D, PER ORAL
     Route: 048
     Dates: start: 20050217, end: 20051006
  2. PIOGLITAZONE HCL [Suspect]
     Indication: GLUCOSE TOLERANCE IMPAIRED
     Dosage: 1 IN 1 D, PER ORAL
     Route: 048
     Dates: start: 20051014
  3. INDOMETHACIN [Concomitant]
  4. ALLOPURINOL [Concomitant]
  5. ATENOLOL [Concomitant]
  6. LOVASTATIN [Concomitant]
  7. ASPIRIN [Concomitant]
  8. RESEARCH DRUG FOR PROSTATE CANCER (ALL OTHER THERAPEUTIC PRODUCTS) [Concomitant]

REACTIONS (3)
  - COLON CANCER [None]
  - COLONIC POLYP [None]
  - DIVERTICULUM [None]
